FAERS Safety Report 15849585 (Version 1)
Quarter: 2019Q1

REPORT INFORMATION
  Report Type: Spontaneous
  Country: US (occurrence: US)
  Receive Date: 20190121
  Receipt Date: 20190121
  Transmission Date: 20190417
  Serious: Yes (Hospitalization)
  Sender: FDA-Public Use
  Company Number: US-MITSUBISHI TANABE PHARMA CORPORATION-MPE2019-0002059

PATIENT
  Age: 47 Year
  Sex: Male

DRUGS (2)
  1. RADICAVA [Suspect]
     Active Substance: EDARAVONE
     Indication: AMYOTROPHIC LATERAL SCLEROSIS
     Route: 042
  2. LEVSIN [Concomitant]
     Active Substance: HYOSCYAMINE SULFATE
     Route: 065

REACTIONS (6)
  - Speech disorder [Unknown]
  - Fall [Unknown]
  - Aphasia [Unknown]
  - Salivary hypersecretion [Unknown]
  - Wheelchair user [Unknown]
  - Hospitalisation [Unknown]

NARRATIVE: CASE EVENT DATE: 201803
